FAERS Safety Report 5224614-4 (Version None)
Quarter: 2006Q4

REPORT INFORMATION
  Report Type: 
  Country: None (occurrence: None)
  Receive Date: 20061201
  Receipt Date: 20060823
  Transmission Date: 20070319
  Serious: No
  Sender: FDA-Public Use
  Company Number: 2006PV019998

PATIENT
  Age: 43 Year
  Sex: Female
  Weight: 79.8331 kg

DRUGS (5)
  1. BYETTA [Suspect]
     Indication: DIABETES MELLITUS NON-INSULIN-DEPENDENT
     Dosage: 5 MCG;BID; SC
     Route: 058
     Dates: start: 20060301, end: 20060301
  2. ZULAR [Concomitant]
  3. LISINOPRIL [Concomitant]
  4. AMARYL [Concomitant]
  5. GLUCOTROL [Concomitant]

REACTIONS (6)
  - ABDOMINAL DISTENSION [None]
  - FLUSHING [None]
  - HYPERSENSITIVITY [None]
  - NAUSEA [None]
  - SWELLING FACE [None]
  - THERAPEUTIC RESPONSE UNEXPECTED [None]
